FAERS Safety Report 4938704-4 (Version None)
Quarter: 2006Q1

REPORT INFORMATION
  Report Type: 
  Country: None (occurrence: None)
  Receive Date: 20060127
  Receipt Date: 20051108
  Transmission Date: 20060701
  Serious: Yes (Other)
  Sender: FDA-Public Use
  Company Number: 2005154186

PATIENT
  Age: 43 Year
  Sex: Female
  Weight: 46.2669 kg

DRUGS (5)
  1. LYRICA [Suspect]
     Indication: FIBROMYALGIA
     Dosage: 100 MG (50 MG, 2 IN 1 D), ORAL
     Route: 048
     Dates: start: 20051106
  2. VALIUM [Suspect]
     Indication: NERVE INJURY
     Dosage: 30 MG (10 MG, 2 IN 1 D)
  3. LOMOTIL [Concomitant]
  4. FIORICET [Concomitant]
  5. LORCET-HD [Concomitant]

REACTIONS (6)
  - DISORIENTATION [None]
  - DIZZINESS [None]
  - DRUG INTERACTION [None]
  - FATIGUE [None]
  - GAIT DISTURBANCE [None]
  - SOMNOLENCE [None]
